FAERS Safety Report 23877564 (Version 1)
Quarter: 2024Q2

REPORT INFORMATION
  Report Type: Other
  Country: AT (occurrence: AT)
  Receive Date: 20240521
  Receipt Date: 20240521
  Transmission Date: 20240716
  Serious: Yes (Other)
  Sender: FDA-Public Use
  Company Number: AT-Bion-013071

PATIENT
  Age: 63 Year
  Sex: Male

DRUGS (1)
  1. CALCITRIOL [Suspect]
     Active Substance: CALCITRIOL
     Indication: Hyperparathyroidism secondary
     Dosage: 0.25 MICROGRAM

REACTIONS (1)
  - Nephrolithiasis [Recovering/Resolving]
